FAERS Safety Report 19811441 (Version 2)
Quarter: 2021Q3

REPORT INFORMATION
  Report Type: Spontaneous
  Country: CA (occurrence: CA)
  Receive Date: 20210909
  Receipt Date: 20210910
  Transmission Date: 20211014
  Serious: Yes (Other)
  Sender: FDA-Public Use
  Company Number: CA-PFIZER INC-202101116957

PATIENT
  Age: 67 Year
  Sex: Male

DRUGS (1)
  1. METHOTREXATE SODIUM. [Suspect]
     Active Substance: METHOTREXATE SODIUM
     Dosage: 25 MG, WEEKLY (PARENTERAL 25MG (15MG FOR OVER 65 YEARS))
     Route: 048

REACTIONS (5)
  - Pain [Unknown]
  - Musculoskeletal stiffness [Unknown]
  - Therapeutic response decreased [Unknown]
  - Rheumatoid arthritis [Unknown]
  - Inflammation [Unknown]
